FAERS Safety Report 9782232 (Version 2)
Quarter: 2014Q1

REPORT INFORMATION
  Report Type: Other
  Country: GB (occurrence: GB)
  Receive Date: 20131226
  Receipt Date: 20140113
  Transmission Date: 20141002
  Serious: Yes (Hospitalization, Congenital Anomaly, Other)
  Sender: FDA-Public Use
  Company Number: GB-SUN PHARMACEUTICAL INDUSTRIES LTD-2013SUN05241

PATIENT
  Sex: Male

DRUGS (15)
  1. OLANZAPINE 5 MG TABLET [Suspect]
     Indication: FOETAL EXPOSURE DURING PREGNANCY
     Dosage: MATERNAL DOSE: 5 MG, OD
     Route: 064
     Dates: start: 20120112, end: 20120114
  2. RISPERDAL [Suspect]
     Indication: FOETAL EXPOSURE DURING PREGNANCY
     Dosage: MATERNAL DOSE: 4 MG, UNK
     Route: 064
     Dates: start: 20120221, end: 20120307
  3. RISPERDAL [Suspect]
     Dosage: MATERNAL DOSE: 3 MG, BID
     Route: 064
     Dates: start: 20120308, end: 20120609
  4. RISPERDAL [Suspect]
     Dosage: MATERNAL DOSE: 12 MG, UNK
     Route: 064
     Dates: start: 20120609, end: 20120821
  5. PROMETHAZINE [Suspect]
     Indication: FOETAL EXPOSURE DURING PREGNANCY
     Dosage: MATERNAL DOSE: 25 MG, OD (AS NECESSARY)
     Route: 064
     Dates: start: 20111216
  6. HALOPERIDOL [Suspect]
     Indication: FOETAL EXPOSURE DURING PREGNANCY
     Dosage: MATERNAL DOSE: 5 MG, BID
     Route: 064
     Dates: start: 20111229, end: 20120104
  7. HALOPERIDOL [Suspect]
     Dosage: MATERNAL DOSE: 5 MG, TID
     Route: 064
     Dates: start: 20120105, end: 20120109
  8. SENNA LEAF [Suspect]
     Indication: FOETAL EXPOSURE DURING PREGNANCY
     Dosage: MATERNAL DOSE: 15 MG, UNK
     Route: 064
     Dates: start: 20120116
  9. CYCLIZINE [Suspect]
     Indication: FOETAL EXPOSURE DURING PREGNANCY
     Dosage: MATERNAL DOSE: 50 MG, UNK
     Route: 064
     Dates: start: 20111228, end: 20120131
  10. CHLORPROMAZINE [Suspect]
     Indication: FOETAL EXPOSURE DURING PREGNANCY
     Dosage: MATERNAL DOSE: 25 MG, TID
     Route: 064
     Dates: start: 20111215, end: 20111219
  11. CHLORPROMAZINE [Suspect]
     Dosage: MATERNAL DOSE: 200 MG, TID
     Route: 064
     Dates: start: 20120109, end: 20120114
  12. ZOPICLONE [Suspect]
     Indication: FOETAL EXPOSURE DURING PREGNANCY
     Dosage: MATERNAL DOSE: 15 MG, UNK
     Route: 064
     Dates: start: 20120210, end: 20120717
  13. ALCOHOL [Suspect]
     Indication: FOETAL EXPOSURE DURING PREGNANCY
     Dosage: MATERNAL DOSE: UNK
     Route: 064
  14. ENTONOX [Suspect]
     Indication: FOETAL EXPOSURE DURING DELIVERY
     Dosage: MATERNAL DOSE: SINGLE DOSE
     Route: 064
     Dates: start: 20120718, end: 20120718
  15. SYNTOMETRINE [Suspect]
     Indication: FOETAL EXPOSURE DURING DELIVERY
     Dosage: MATERNAL DOSE: SINGLE DOSE
     Route: 064
     Dates: start: 20120718, end: 20120718

REACTIONS (6)
  - Dextrocardia [Unknown]
  - Foetal alcohol syndrome [Unknown]
  - Visual impairment [Unknown]
  - Drug withdrawal syndrome [Unknown]
  - Foetal exposure during delivery [Recovered/Resolved]
  - Foetal exposure during pregnancy [Recovered/Resolved]
